FAERS Safety Report 7426688-9 (Version None)
Quarter: 2011Q2

REPORT INFORMATION
  Report Type: 
  Country: None (occurrence: None)
  Receive Date: 20110420
  Receipt Date: 20110419
  Transmission Date: 20111010
  Serious: Yes (Life-Threatening, Hospitalization)
  Sender: FDA-Public Use
  Company Number: US-B.I. PHARMACEUTICALS,INC./RIDGEFIELD-2011-BP-06614BP

PATIENT
  Age: 79 Year
  Sex: Female
  Weight: 82.55 kg

DRUGS (6)
  1. ACETAMINOPHEN [Concomitant]
     Route: 048
     Dates: start: 20110210
  2. CRESTOR [Concomitant]
     Dosage: 5 MG
     Route: 048
     Dates: start: 20100113
  3. AMIDARONE [Concomitant]
     Dosage: 100 MG
     Route: 048
     Dates: start: 20110105
  4. COREG [Concomitant]
     Dosage: 12.5 MG
     Route: 048
     Dates: start: 20100113
  5. PRADAXA [Suspect]
     Dates: end: 20110201
  6. LASIX [Concomitant]
     Dosage: 20 MG
     Route: 048
     Dates: start: 20100113

REACTIONS (3)
  - HYPOTENSION [None]
  - MELAENA [None]
  - GASTROINTESTINAL HAEMORRHAGE [None]
